FAERS Safety Report 6142492-6 (Version None)
Quarter: 2009Q2

REPORT INFORMATION
  Report Type: 
  Country: None (occurrence: None)
  Receive Date: 20090403
  Receipt Date: 20090323
  Transmission Date: 20091009
  Serious: Yes (Death)
  Sender: FDA-Public Use
  Company Number: ZA-PFIZER INC-2009187854

PATIENT

DRUGS (2)
  1. FLUCONAZOLE [Suspect]
     Indication: CANDIDIASIS
     Dosage: 400 MG, 1X/DAY
     Route: 042
  2. FLUCONAZOLE [Suspect]
     Dosage: 50 MG, 1X/DAY
     Route: 042

REACTIONS (2)
  - HEPATIC FAILURE [None]
  - RENAL FAILURE [None]
